FAERS Safety Report 5788789-0 (Version None)
Quarter: 2008Q2

REPORT INFORMATION
  Report Type: 
  Country: None (occurrence: None)
  Receive Date: 20080626
  Receipt Date: 20050506
  Transmission Date: 20081010
  Serious: Yes (Other)
  Sender: FDA-Public Use
  Company Number: VE-AVENTIS-200513936GDDC

PATIENT
  Age: 50 Year
  Sex: Female

DRUGS (9)
  1. INSULIN GLARGINE [Suspect]
     Indication: DIABETES MELLITUS
     Route: 058
     Dates: start: 20050224
  2. OPTIPEN (INSULIN PUMP) [Suspect]
     Indication: DIABETES MELLITUS
  3. OMACOR                             /00931501/ [Suspect]
     Dosage: DOSE: 1 CAPSULE
     Dates: start: 20050224
  4. PREDNISONE [Concomitant]
     Dosage: DOSE: UNK
     Dates: start: 20050401, end: 20050401
  5. DICLOFENAC SODIUM [Concomitant]
  6. RAMIPRIL [Concomitant]
     Indication: HYPERTENSION
     Dates: start: 20050101
  7. SIMVASTATIN [Concomitant]
     Dates: start: 20050101
  8. GLICLAZIDE [Concomitant]
     Indication: DIABETES MELLITUS
     Route: 048
     Dates: start: 20030101
  9. ASPIRIN [Concomitant]
     Dates: start: 20030101

REACTIONS (1)
  - VAGINAL HAEMORRHAGE [None]
